FAERS Safety Report 16408431 (Version 1)
Quarter: 2019Q2

REPORT INFORMATION
  Report Type: Spontaneous
  Country: US (occurrence: US)
  Receive Date: 20190502
  Receipt Date: 20190502
  Transmission Date: 20190711
  Serious: No
  Sender: FDA-Public Use
  Company Number: None

PATIENT
  Age: 76 Year
  Sex: Male

DRUGS (1)
  1. TAFINLAR [Suspect]
     Active Substance: DABRAFENIB MESYLATE
     Route: 048
     Dates: start: 201808

REACTIONS (4)
  - Cough [None]
  - Nasal congestion [None]
  - Nasopharyngitis [None]
  - Rhinorrhoea [None]

NARRATIVE: CASE EVENT DATE: 20190425
